FAERS Safety Report 5615710-8 (Version None)
Quarter: 2008Q1

REPORT INFORMATION
  Report Type: 
  Country: None (occurrence: None)
  Receive Date: 20080206
  Receipt Date: 20080125
  Transmission Date: 20080703
  Serious: Yes (Other)
  Sender: FDA-Public Use
  Company Number: DE-JNJFOC-20080105598

PATIENT
  Age: 62 Year
  Sex: Male

DRUGS (6)
  1. NIZORAL [Suspect]
     Indication: DRUG USE FOR UNKNOWN INDICATION
     Route: 061
  2. NIFEDIPINE [Concomitant]
     Route: 065
  3. ACETYLCYSTEINE [Concomitant]
     Route: 065
  4. FENOFIBRATE [Concomitant]
     Route: 065
  5. FENISTIL [Concomitant]
     Route: 065
  6. ST JOHN'S WORT [Concomitant]
     Route: 065

REACTIONS (4)
  - DRUG INEFFECTIVE [None]
  - SKIN DISCOLOURATION [None]
  - SKIN ODOUR ABNORMAL [None]
  - SKIN ULCER [None]
